FAERS Safety Report 14929353 (Version 1)
Quarter: 2018Q2

REPORT INFORMATION
  Report Type: Report from Study
  Country: IT (occurrence: IT)
  Receive Date: 20180523
  Receipt Date: 20180523
  Transmission Date: 20180711
  Serious: Yes (Hospitalization)
  Sender: FDA-Public Use
  Company Number: IT-JNJFOC-20180529306

PATIENT
  Age: 74 Year
  Sex: Male

DRUGS (5)
  1. SOTALEX [Concomitant]
     Active Substance: SOTALOL
     Route: 048
  2. RAMIPRIL COMP [Concomitant]
     Active Substance: HYDROCHLOROTHIAZIDE\RAMIPRIL
     Route: 065
  3. XARELTO [Suspect]
     Active Substance: RIVAROXABAN
     Indication: PRODUCT USED FOR UNKNOWN INDICATION
     Route: 048
     Dates: start: 20170101, end: 20180316
  4. TAPAZOLE [Concomitant]
     Active Substance: METHIMAZOLE
     Route: 065
  5. PRAZEPAM [Concomitant]
     Active Substance: PRAZEPAM
     Route: 065

REACTIONS (2)
  - Aphasia [Recovered/Resolved]
  - Extradural haematoma [Recovered/Resolved]

NARRATIVE: CASE EVENT DATE: 20180316
